FAERS Safety Report 7538770-6 (Version None)
Quarter: 2011Q2

REPORT INFORMATION
  Report Type: 
  Country: None (occurrence: None)
  Receive Date: 20110610
  Receipt Date: 20090930
  Transmission Date: 20111010
  Serious: Yes (Hospitalization, Other)
  Sender: FDA-Public Use
  Company Number: US-BAYER-200934765NA

PATIENT
  Age: 67 Year
  Sex: Male
  Weight: 88.889 kg

DRUGS (29)
  1. NORVASC [Concomitant]
     Indication: PRODUCT USED FOR UNKNOWN INDICATION
     Dosage: 7.5MG DAILY
     Route: 048
  2. FOSPHENYTOIN [Concomitant]
  3. CEPHALOSPORIN C [Concomitant]
  4. RED BLOOD CELLS [Concomitant]
     Dosage: 27 U, UNK
     Route: 042
     Dates: start: 20040303
  5. INSULIN [Concomitant]
  6. PROTAMINE SULFATE [Concomitant]
     Dosage: 300 MG, UNK
     Route: 042
     Dates: start: 20040303
  7. METHOTREXATE [Concomitant]
  8. VOLTAREN [Concomitant]
  9. LEVOPHED [Concomitant]
     Dosage: UNK
     Route: 042
     Dates: start: 20040303
  10. ALBUMIN (HUMAN) [Concomitant]
     Dosage: 25 G, UNK
     Route: 042
     Dates: start: 20040303
  11. METOPROLOL SUCCINATE [Concomitant]
     Indication: PRODUCT USED FOR UNKNOWN INDICATION
     Dosage: 25 MG DAILY
     Route: 048
  12. LESCOL [Concomitant]
  13. EFFEXOR [Concomitant]
     Dosage: 75 MILLIGRAMS
     Route: 048
  14. DILANTIN [Concomitant]
  15. FRESH FROZEN PLASMA [Concomitant]
     Dosage: 4 U, UNK
     Route: 042
     Dates: start: 20040303
  16. TRASYLOL [Suspect]
     Indication: CORONARY ARTERY BYPASS
     Dosage: 400 ML, ONCE
     Route: 042
     Dates: start: 20040303
  17. TRASYLOL [Suspect]
     Indication: BIOPSY LUNG
  18. HEPARIN [Concomitant]
     Dosage: 10,000 UNITS AND 5,000 UNITS
     Route: 042
     Dates: start: 20040303
  19. MANNITOL [Concomitant]
     Dosage: 25 G, UNK
     Route: 042
     Dates: start: 20040303
  20. MILRINONE [Concomitant]
     Dosage: UNK
     Route: 042
     Dates: start: 20040303
  21. VERSED [Concomitant]
     Dosage: 10 MG, UNK
     Route: 042
     Dates: start: 20040303
  22. NEOSYNEPHRINE [Concomitant]
     Dosage: UNK
     Route: 042
     Dates: start: 20040303
  23. TRASYLOL [Suspect]
     Indication: LUNG OPERATION
  24. LEVOPHED [Concomitant]
     Dosage: UNK
     Dates: start: 20040304
  25. ZINACEF [Concomitant]
     Dosage: 1.5 G, UNK
     Route: 042
     Dates: start: 20040303
  26. EPINEPHRINE [Concomitant]
     Dosage: UNK
     Route: 042
     Dates: start: 20040303
  27. AMIODARONE HCL [Concomitant]
  28. LASIX [Concomitant]
     Dosage: 10 MG, UNK
     Route: 042
     Dates: start: 20040303
  29. PLATELETS [Concomitant]
     Dosage: 1 U, UNK
     Route: 042
     Dates: start: 20040303

REACTIONS (14)
  - INJURY [None]
  - MULTI-ORGAN FAILURE [None]
  - UNEVALUABLE EVENT [None]
  - EMOTIONAL DISTRESS [None]
  - PAIN [None]
  - ANHEDONIA [None]
  - ANXIETY [None]
  - RENAL FAILURE [None]
  - DEPRESSION [None]
  - FEAR [None]
  - FEAR OF DEATH [None]
  - CEREBROVASCULAR ACCIDENT [None]
  - NERVOUSNESS [None]
  - RENAL INJURY [None]
